FAERS Safety Report 6010174-7 (Version None)
Quarter: 2008Q4

REPORT INFORMATION
  Report Type: 
  Country: None (occurrence: None)
  Receive Date: 20081218
  Receipt Date: 20081215
  Transmission Date: 20090506
  Serious: Yes (Other)
  Sender: FDA-Public Use
  Company Number: US-ASTRAZENECA-2008UW28000

PATIENT
  Age: 66 Year
  Sex: Female
  Weight: 47.6 kg

DRUGS (4)
  1. CRESTOR [Suspect]
     Indication: BLOOD CHOLESTEROL
     Route: 048
  2. ATENOLOL [Concomitant]
  3. SYNTHROID [Concomitant]
  4. ACTONEL [Concomitant]

REACTIONS (2)
  - CELLULITIS [None]
  - OEDEMA PERIPHERAL [None]
